FAERS Safety Report 21856455 (Version 6)
Quarter: 2023Q1

REPORT INFORMATION
  Report Type: Report from Study
  Country: CA (occurrence: CA)
  Receive Date: 20230112
  Receipt Date: 20230310
  Transmission Date: 20230418
  Serious: Yes (Life-Threatening, Hospitalization, Other)
  Sender: FDA-Public Use
  Company Number: CA-HLS-202300052

PATIENT
  Age: 34 Year
  Sex: Female

DRUGS (5)
  1. CLOZARIL [Suspect]
     Active Substance: CLOZAPINE
     Indication: Schizophrenia
     Dosage: 100MG STARTED ON 03-JAN-2023; PATIENT INCONSISTENT FOR A FEW DAYS THEN STOPPED
     Route: 048
  2. CLOZARIL [Suspect]
     Active Substance: CLOZAPINE
     Indication: Schizophrenia
     Dosage: 300MG;?PATIENT DID NOT TAKE 300MG CLOZAPINE X 7 DAYS LEADING UP TO 02-JAN-2023
     Route: 048
     Dates: start: 20220203
  3. CLOZARIL [Suspect]
     Active Substance: CLOZAPINE
     Indication: Schizophrenia
     Dosage: RESTARTED IN HOSPITAL JANUARY 3RD, 300 MG ON 24-FEB-2023.
     Route: 048
     Dates: start: 20230103
  4. CLOZARIL [Suspect]
     Active Substance: CLOZAPINE
     Indication: Schizophrenia
     Dosage: RESTARTED ON JAN 5, 2023- 50MG
     Route: 048
     Dates: end: 20230105
  5. CLOZARIL [Suspect]
     Active Substance: CLOZAPINE
     Indication: Schizophrenia
     Dosage: RESTARTED ON JANUARY 8, 2023-100MG
     Route: 048

REACTIONS (8)
  - Therapy interrupted [Recovered/Resolved]
  - Aggression [Unknown]
  - Depressed level of consciousness [Recovered/Resolved]
  - Treatment noncompliance [Not Recovered/Not Resolved]
  - Product dose omission issue [Unknown]
  - Treatment noncompliance [Recovered/Resolved]
  - Treatment noncompliance [Recovered/Resolved]
  - Respiratory failure [Recovered/Resolved]

NARRATIVE: CASE EVENT DATE: 20230103
